FAERS Safety Report 12171711 (Version 2)
Quarter: 2016Q2

REPORT INFORMATION
  Report Type: Spontaneous
  Country: BR (occurrence: BR)
  Receive Date: 20160311
  Receipt Date: 20160516
  Transmission Date: 20160815
  Serious: Yes (Hospitalization, Other)
  Sender: FDA-Public Use
  Company Number: BR-PFIZER INC-2016145682

PATIENT
  Age: 71 Year
  Sex: Male
  Weight: 73 kg

DRUGS (10)
  1. ASPIRINA [Concomitant]
     Active Substance: ASPIRIN
     Dosage: UNK
     Dates: start: 2006
  2. LIPITOR [Suspect]
     Active Substance: ATORVASTATIN CALCIUM
     Dosage: 80 MG, UNK
     Dates: start: 201512, end: 201604
  3. VITAMIN D [Concomitant]
     Active Substance: CHOLECALCIFEROL
     Dosage: UNK
     Dates: start: 2006
  4. PLAVIX [Concomitant]
     Active Substance: CLOPIDOGREL BISULFATE
     Dosage: UNK
     Dates: start: 2006
  5. BENICAR AMLO [Concomitant]
     Active Substance: AMLODIPINE BESYLATE\OLMESARTAN MEDOXOMIL
     Dosage: 1 DF, DAILY
  6. XATRAL OD [Concomitant]
     Active Substance: ALFUZOSIN
     Dosage: UNK
     Dates: start: 2006
  7. LIPITOR [Suspect]
     Active Substance: ATORVASTATIN CALCIUM
     Indication: BLOOD CHOLESTEROL
     Dosage: 10 MG, DAILY
     Dates: start: 2003
  8. FOLIC ACID. [Concomitant]
     Active Substance: FOLIC ACID
     Dosage: 800 UG, DAILY
  9. LIPITOR [Suspect]
     Active Substance: ATORVASTATIN CALCIUM
     Dosage: 40 UNK, UNK
     Dates: start: 201604
  10. AAS INFANTIL [Concomitant]
     Active Substance: ASPIRIN
     Dosage: 81 MG, DAILY

REACTIONS (1)
  - Infarction [Recovered/Resolved]

NARRATIVE: CASE EVENT DATE: 20151215
